FAERS Safety Report 17472527 (Version 3)
Quarter: 2020Q3

REPORT INFORMATION
  Report Type: Report from Study
  Country: US (occurrence: US)
  Receive Date: 20200228
  Receipt Date: 20200728
  Transmission Date: 20201102
  Serious: Yes (Hospitalization)
  Sender: FDA-Public Use
  Company Number: US-ROCHE-2556519

PATIENT
  Age: 60 Year
  Sex: Female

DRUGS (1)
  1. ATEZOLIZUMAB. [Suspect]
     Active Substance: ATEZOLIZUMAB
     Indication: CERVIX CANCER METASTATIC
     Dosage: MOST RECENT DOSE OF ATEZOLIZUMAB PRIOR TO AE: 29/JAN/2020
     Route: 042
     Dates: start: 20191230

REACTIONS (3)
  - Hydronephrosis [Unknown]
  - Acute kidney injury [Unknown]
  - Fracture [Unknown]

NARRATIVE: CASE EVENT DATE: 20200220
